FAERS Safety Report 6037764-X (Version None)
Quarter: 2009Q1

REPORT INFORMATION
  Report Type: 
  Country: None (occurrence: None)
  Receive Date: 20090113
  Receipt Date: 20090105
  Transmission Date: 20090719
  Serious: Yes (Death, Hospitalization)
  Sender: FDA-Public Use
  Company Number: FABR-1000599

PATIENT
  Age: 65 Year
  Sex: Male

DRUGS (2)
  1. FABRAZYME [Suspect]
     Indication: FABRY'S DISEASE
     Dosage: 1 MG/KG, Q2W, INTRAVENOUS
     Route: 042
     Dates: start: 20031204, end: 20090103
  2. AMIODARONE HCL [Concomitant]

REACTIONS (2)
  - DISEASE COMPLICATION [None]
  - RENAL FAILURE [None]
